FAERS Safety Report 4330043-8 (Version None)
Quarter: 2004Q1

REPORT INFORMATION
  Report Type: 
  Country: None (occurrence: None)
  Receive Date: 20040329
  Receipt Date: 20040205
  Transmission Date: 20041129
  Serious: No
  Sender: FDA-Public Use
  Company Number: 03P-163-0234682-00

PATIENT
  Age: 63 Year
  Sex: Female
  Weight: 58.9676 kg

DRUGS (7)
  1. HUMIRA [Suspect]
     Indication: RHEUMATOID ARTHRITIS
     Dosage: 40 MG, 1 IN 2 WK, SUBCUTANEOUS
     Route: 058
     Dates: start: 20030601
  2. IBUPROFEN [Concomitant]
  3. LEKOVIT CA [Concomitant]
  4. PYRIDOXINE HYDROCHLORIDE [Concomitant]
  5. WOMAN'S 50 [Concomitant]
  6. KLIOGEST ^NOVO INDUSTRI^ [Concomitant]
  7. ZOLPIDEM TARTRATE [Concomitant]

REACTIONS (1)
  - POLYNEUROPATHY [None]
